FAERS Safety Report 4737777-1 (Version None)
Quarter: 2005Q3

REPORT INFORMATION
  Report Type: 
  Country: None (occurrence: None)
  Receive Date: 20050809
  Receipt Date: 20050729
  Transmission Date: 20060218
  Serious: Yes (Hospitalization)
  Sender: FDA-Public Use
  Company Number: FR-ABBOTT-05P-056-0307058-00

PATIENT
  Age: 76 Year
  Sex: Female

DRUGS (6)
  1. DEPAKENE [Suspect]
     Indication: EPILEPSY
     Route: 048
     Dates: start: 20050513, end: 20050516
  2. OFLOXACIN [Suspect]
     Indication: PNEUMONIA ASPIRATION
     Route: 048
     Dates: start: 20050513, end: 20050516
  3. CLAVULIN [Suspect]
     Indication: PNEUMONIA ASPIRATION
     Route: 048
     Dates: start: 20050513, end: 20050516
  4. ZOVIRAX [Suspect]
     Indication: HEPATIC ENCEPHALOPATHY
     Route: 042
     Dates: start: 20050513, end: 20050516
  5. GLICLAZIDE [Suspect]
     Indication: DRUG USE FOR UNKNOWN INDICATION
     Route: 048
     Dates: end: 20050516
  6. ATORVASTATIN CALCIUM [Suspect]
     Indication: DRUG USE FOR UNKNOWN INDICATION
     Route: 048
     Dates: end: 20050516

REACTIONS (7)
  - BLOOD AMYLASE INCREASED [None]
  - CYTOLYTIC HEPATITIS [None]
  - EPSTEIN-BARR VIRUS ANTIBODY POSITIVE [None]
  - HEPATITIS A ANTIBODY POSITIVE [None]
  - HEPATITIS CHOLESTATIC [None]
  - HERPES SIMPLEX SEROLOGY POSITIVE [None]
  - LIPASE INCREASED [None]
